FAERS Safety Report 9712350 (Version 1)
Quarter: 2013Q4

REPORT INFORMATION
  Report Type: Spontaneous
  Country: US (occurrence: US)
  Receive Date: 20131126
  Receipt Date: 20131126
  Transmission Date: 20140711
  Serious: No
  Sender: FDA-Public Use
  Company Number: US-BRISTOL-MYERS SQUIBB COMPANY-19167097

PATIENT
  Age: 39 Year
  Sex: Male
  Weight: 113.38 kg

DRUGS (1)
  1. BYDUREON [Suspect]
     Indication: TYPE 2 DIABETES MELLITUS
     Route: 058
     Dates: start: 201304

REACTIONS (5)
  - Injection site pruritus [Unknown]
  - Injection site irritation [Unknown]
  - Nausea [Unknown]
  - Weight decreased [Recovered/Resolved]
  - Injection site swelling [Unknown]
